FAERS Safety Report 4512040-2 (Version None)
Quarter: 2004Q4

REPORT INFORMATION
  Report Type: 
  Country: None (occurrence: None)
  Receive Date: 20041123
  Receipt Date: 20041110
  Transmission Date: 20050328
  Serious: Yes (Hospitalization, Other)
  Sender: FDA-Public Use
  Company Number: HQWYE455312NOV04

PATIENT
  Age: 45 Year
  Sex: Female
  Weight: 50.85 kg

DRUGS (19)
  1. TACROLIMUS, CONTROL FOR SIROLIMUS (TACROLIMUS, CONTROL FOR SIROLIMUS) [Suspect]
     Indication: PROPHYLAXIS AGAINST TRANSPLANT REJECTION
     Dosage: SEE IMAGE
     Route: 048
     Dates: start: 20041005, end: 20040101
  2. TACROLIMUS, CONTROL FOR SIROLIMUS (TACROLIMUS, CONTROL FOR SIROLIMUS) [Suspect]
     Indication: PROPHYLAXIS AGAINST TRANSPLANT REJECTION
     Dosage: SEE IMAGE
     Route: 048
     Dates: start: 20040101
  3. CELLCEPT [Suspect]
     Indication: PROPHYLAXIS AGAINST TRANSPLANT REJECTION
     Dosage: 1000 MG 2X PER 1 DAY, ORAL
     Route: 048
     Dates: start: 20041005
  4. PREDNISONE [Concomitant]
  5. ASPIRIN [Concomitant]
  6. SEPTRA [Concomitant]
  7. NYSTATIN [Concomitant]
  8. LASIX [Concomitant]
  9. CALCITRIOL [Concomitant]
  10. COLACE (DOCUSATE SODIUM) [Concomitant]
  11. OS-CAL (CALCIUM/ERGOCALCIFEROL) [Concomitant]
  12. NEUTRA-PHOS (POTASSIUM PHOSPHATE DIABASIC/POTASSIUM PHOSPHATE MONOBASI [Concomitant]
  13. LIPITOR [Concomitant]
  14. ACYCLOVIR [Concomitant]
  15. NORVASC (AMLODIPINE BEISLATE) [Concomitant]
  16. KLONOPIN [Concomitant]
  17. PEPCID [Concomitant]
  18. MULTIVITAMINS (ASCORBIC ACID/ERGOCALCIFEROL/FOLIC ACID/NICOTINAMIDE/PA [Concomitant]
  19. VITAMIN E [Concomitant]

REACTIONS (3)
  - FLANK PAIN [None]
  - LYMPHOCELE [None]
  - POST PROCEDURAL COMPLICATION [None]
